FAERS Safety Report 8444318-4 (Version None)
Quarter: 2012Q2

REPORT INFORMATION
  Report Type: 
  Country: None (occurrence: None)
  Receive Date: 20120618
  Receipt Date: 20120608
  Transmission Date: 20120825
  Serious: Yes (Hospitalization)
  Sender: FDA-Public Use
  Company Number: JP-PFIZER INC-2012112649

PATIENT
  Age: 65 Year
  Sex: Male

DRUGS (5)
  1. CELEBREX [Concomitant]
     Indication: RHEUMATOID ARTHRITIS
     Dosage: 100 MG, 2X/DAY
     Route: 048
     Dates: start: 20110420, end: 20110426
  2. CELEBREX [Concomitant]
     Dosage: 200 MG, 2X/DAY
     Route: 048
     Dates: start: 20110427
  3. SELBEX [Concomitant]
     Indication: GASTRITIS
     Dosage: 50 MG, 2X/DAY
     Route: 048
     Dates: start: 20110427
  4. ZYRTEC [Concomitant]
     Indication: ECZEMA
     Dosage: 10 MG, 1X/DAY
     Route: 048
     Dates: start: 19990101
  5. AZULFIDINE [Suspect]
     Indication: RHEUMATOID ARTHRITIS
     Dosage: 500 MG, 2X/DAY
     Route: 048
     Dates: start: 20110427, end: 20110601

REACTIONS (1)
  - LUNG DISORDER [None]
